FAERS Safety Report 8044980-4 (Version None)
Quarter: 2012Q1

REPORT INFORMATION
  Report Type: 
  Country: None (occurrence: None)
  Receive Date: 20120113
  Receipt Date: 20120105
  Transmission Date: 20120608
  Serious: Yes (Hospitalization)
  Sender: FDA-Public Use
  Company Number: TR-GENZYME-THYR-1000595

PATIENT
  Sex: Male
  Weight: 80 kg

DRUGS (3)
  1. THYROGEN [Suspect]
     Indication: DIAGNOSTIC PROCEDURE
     Dosage: 0.9 MG, ONCE
     Route: 042
     Dates: start: 20111216, end: 20111216
  2. LEVOTHYROXINE SODIUM [Concomitant]
     Indication: HORMONE SUPPRESSION THERAPY
     Dosage: 250 MCG, QD
     Route: 065
  3. ATORVASTATIN [Concomitant]
     Indication: PRODUCT USED FOR UNKNOWN INDICATION
     Dosage: 20 MG, QD
     Route: 065

REACTIONS (7)
  - PRESYNCOPE [None]
  - DIZZINESS [None]
  - VOMITING [None]
  - NAUSEA [None]
  - INCORRECT ROUTE OF DRUG ADMINISTRATION [None]
  - VERTIGO [None]
  - BURNING SENSATION [None]
